FAERS Safety Report 5828927-4 (Version None)
Quarter: 2008Q3

REPORT INFORMATION
  Report Type: 
  Country: None (occurrence: None)
  Receive Date: 20080731
  Receipt Date: 20080723
  Transmission Date: 20090109
  Serious: Yes (Other)
  Sender: FDA-Public Use
  Company Number: AT-ROCHE-577509

PATIENT
  Age: 76 Year
  Sex: Female

DRUGS (1)
  1. ISOTRETINOIN [Suspect]
     Indication: ROSACEA
     Route: 065

REACTIONS (2)
  - CEREBRAL ISCHAEMIA [None]
  - OCULAR TOXICITY [None]
